FAERS Safety Report 19358666 (Version 2)
Quarter: 2021Q3

REPORT INFORMATION
  Report Type: Report from Study
  Country: BE (occurrence: BE)
  Receive Date: 20210602
  Receipt Date: 20210810
  Transmission Date: 20211014
  Serious: Yes (Hospitalization)
  Sender: FDA-Public Use
  Company Number: BE-PFIZER INC-2021561158

PATIENT
  Age: 52 Year
  Sex: Female

DRUGS (29)
  1. LAXOBERON [Concomitant]
     Active Substance: SODIUM PICOSULFATE
     Indication: PROPHYLAXIS
     Dosage: 12 DROP, DAILY, AS NEEDED
     Route: 048
     Dates: start: 20201013, end: 20201101
  2. DUROGESIC [Suspect]
     Active Substance: FENTANYL
     Dosage: 75 MCG, EVERY 3 DAYS
     Route: 062
     Dates: start: 20201014, end: 20201031
  3. BUSCOPAN [Concomitant]
     Active Substance: BUTYLSCOPOLAMINE BROMIDE
     Dosage: UNK
     Dates: start: 20200921, end: 20201101
  4. FORLAX [Concomitant]
     Active Substance: POLYETHYLENE GLYCOL 4000
     Indication: PROPHYLAXIS
     Dosage: 1 DF(BAG), 3X/DAY
     Route: 065
     Dates: start: 20201120
  5. TISOTUMAB VEDOTIN. [Suspect]
     Active Substance: TISOTUMAB VEDOTIN
     Dosage: UNK
     Route: 065
     Dates: end: 20201130
  6. DUROGESIC [Suspect]
     Active Substance: FENTANYL
     Dosage: 37.5 UG/HR, EVERY 3 DAYS
     Route: 062
     Dates: start: 20200928, end: 20201008
  7. DUROGESIC [Suspect]
     Active Substance: FENTANYL
     Dosage: 50 UG/HR, EVERY 3 DAYS
     Route: 062
     Dates: start: 20201101
  8. LITICAN [ALIZAPRIDE] [Concomitant]
     Dates: start: 20201005
  9. CARBOPLATIN. [Suspect]
     Active Substance: CARBOPLATIN
     Indication: CERVIX CARCINOMA
     Dosage: 5 AUC, EVERY 3 WEEKS
     Route: 042
     Dates: start: 20200928, end: 20200928
  10. CARBOPLATIN. [Suspect]
     Active Substance: CARBOPLATIN
     Dosage: 4 AUC, EVERY 3 WEEKS
     Route: 042
     Dates: start: 20201102, end: 20201102
  11. TISOTUMAB VEDOTIN. [Suspect]
     Active Substance: TISOTUMAB VEDOTIN
     Dosage: UNK
     Route: 065
     Dates: end: 20201116
  12. DUROGESIC [Suspect]
     Active Substance: FENTANYL
     Indication: ABDOMINAL PAIN LOWER
     Dosage: 12.5 UG/HR, EVERY 3 DAYS
     Route: 062
     Dates: start: 202003, end: 202009
  13. PANTOMED [PANTOPRAZOLE SODIUM SESQUIHYDRATE] [Concomitant]
     Active Substance: PANTOPRAZOLE SODIUM
     Dosage: UNK
     Dates: start: 202003
  14. VOLTAREN [DICLOFENAC] [Concomitant]
     Active Substance: DICLOFENAC SODIUM
     Dosage: UNK
     Dates: start: 20201013
  15. MOVICOL [Concomitant]
     Active Substance: POLYETHYLENE GLYCOL 3350\POTASSIUM CHLORIDE\SODIUM BICARBONATE\SODIUM CHLORIDE
     Dates: end: 20200922
  16. PARACETAMOL [Concomitant]
     Active Substance: ACETAMINOPHEN
     Dosage: UNK
     Dates: start: 202003
  17. SPASMOMEN [Concomitant]
     Active Substance: OTILONIUM BROMIDE
     Dosage: UNK
     Dates: start: 20200921, end: 20200927
  18. DUROGESIC [Suspect]
     Active Substance: FENTANYL
     Dosage: 50 UG/HR, EVERY 3 DAYS
     Route: 062
     Dates: start: 20201009, end: 20201013
  19. FORLAX [Concomitant]
     Active Substance: POLYETHYLENE GLYCOL 4000
     Indication: CONSTIPATION
     Dosage: UNK
     Dates: start: 20200923
  20. THEALOZ DUO [Concomitant]
     Active Substance: HYALURONATE SODIUM\TREHALOSE
     Dosage: UNK
     Dates: start: 20200928
  21. LAXOBERON [Concomitant]
     Active Substance: SODIUM PICOSULFATE
     Indication: FAECALOMA
     Dosage: UNK
  22. BEFACT [CYANOCOBALAMIN;PYRIDOXINE HYDROCHLORIDE;RIBOFLAVIN;THIAMINE MO [Concomitant]
     Active Substance: CYANOCOBALAMIN\PYRIDOXINE\RIBOFLAVIN\THIAMINE
     Dosage: UNK
     Dates: start: 20201019
  23. PARACETAMOL [Concomitant]
     Active Substance: ACETAMINOPHEN
     Dosage: 1 G, DAILY
     Route: 042
     Dates: start: 20201009, end: 20201009
  24. TISOTUMAB VEDOTIN. [Suspect]
     Active Substance: TISOTUMAB VEDOTIN
     Indication: CERVIX CARCINOMA
     Dosage: 2 MG/KG, EVERY 3 WEEKS (2 MG/KG, 1Q3W)
     Route: 042
     Dates: start: 20200928, end: 20201102
  25. DUROGESIC [Suspect]
     Active Substance: FENTANYL
     Dosage: 25 UG/HR,  EVERY 3 DAYS
     Route: 062
     Dates: start: 202009, end: 20200927
  26. OXYNORM [Suspect]
     Active Substance: OXYCODONE HYDROCHLORIDE
     Indication: ABDOMINAL PAIN LOWER
     Dosage: 5 MG, AS NEEDED
     Route: 048
     Dates: start: 202003, end: 20200929
  27. OXYNORM [Suspect]
     Active Substance: OXYCODONE HYDROCHLORIDE
     Dosage: 10 MG, AS NEEDED
     Route: 048
     Dates: start: 202009
  28. LAXOBERON [Concomitant]
     Active Substance: SODIUM PICOSULFATE
     Indication: CONSTIPATION
     Dosage: UNK
  29. FORLAX [Concomitant]
     Active Substance: POLYETHYLENE GLYCOL 4000
     Indication: FAECALOMA
     Dosage: 1 DF(BAG), 2X/DAY
     Route: 048
     Dates: start: 20201005

REACTIONS (2)
  - Faecaloma [Recovered/Resolved]
  - Faecaloma [Recovered/Resolved]

NARRATIVE: CASE EVENT DATE: 20201005
